FAERS Safety Report 9817920 (Version 1)
Quarter: 2013Q4

REPORT INFORMATION
  Report Type: Spontaneous
  Country: US (occurrence: None)
  Receive Date: 20131224
  Receipt Date: 20131224
  Transmission Date: 20140711
  Serious: No
  Sender: FDA-Public Use
  Company Number: PHEH2013US023801

PATIENT
  Sex: 0

DRUGS (1)
  1. GILENYA [Suspect]
     Route: 048

REACTIONS (2)
  - Rash [None]
  - Pruritus [None]
